FAERS Safety Report 23795794 (Version 1)
Quarter: 2024Q2

REPORT INFORMATION
  Report Type: Spontaneous
  Country: US (occurrence: US)
  Receive Date: 20240429
  Receipt Date: 20240429
  Transmission Date: 20240716
  Serious: Yes (Hospitalization, Other)
  Sender: FDA-Public Use
  Company Number: US-ANIPHARMA-2024-US-023518

PATIENT
  Age: 62 Year
  Sex: Female

DRUGS (13)
  1. FLUCONAZOLE [Suspect]
     Active Substance: FLUCONAZOLE
     Indication: Oropharyngeal candidiasis
  2. Bicetegravir/Emtricitabine/Tenofovir [Concomitant]
  3. POLYETHYLENE GLYCOL [Concomitant]
     Active Substance: POLYETHYLENE GLYCOL
  4. SENNOSIDES [Concomitant]
     Active Substance: SENNOSIDES
  5. HEPARIN [Concomitant]
     Active Substance: HEPARIN SODIUM
     Route: 058
  6. SULFAMETHOXAZOLE\TRIMETHOPRIM [Suspect]
     Active Substance: SULFAMETHOXAZOLE\TRIMETHOPRIM
     Indication: Antifungal prophylaxis
  7. SCOPOLAMINE [Suspect]
     Active Substance: SCOPOLAMINE
     Indication: Nausea
     Dosage: 1 MG PATCH EVERY 72 HOURS
     Route: 061
  8. LEVOFLOXACIN [Concomitant]
     Active Substance: LEVOFLOXACIN
  9. IPRATROPIUM BROMIDE AND ALBUTEROL SULFATE [Concomitant]
     Active Substance: ALBUTEROL SULFATE\IPRATROPIUM BROMIDE
  10. BUDESONIDE [Concomitant]
     Active Substance: BUDESONIDE
  11. MONTELUKAST [Concomitant]
     Active Substance: MONTELUKAST SODIUM
  12. GUAIFENESIN [Concomitant]
     Active Substance: GUAIFENESIN
  13. PREGABALIN [Concomitant]
     Active Substance: PREGABALIN

REACTIONS (2)
  - Drug interaction [Recovered/Resolved]
  - Supraventricular tachycardia [Recovered/Resolved]
